FAERS Safety Report 16078810 (Version 1)
Quarter: 2019Q1

REPORT INFORMATION
  Report Type: Report from Study
  Country: US (occurrence: US)
  Receive Date: 20190315
  Receipt Date: 20190315
  Transmission Date: 20190418
  Serious: Yes (Hospitalization)
  Sender: FDA-Public Use
  Company Number: US-TEVA-2019-US-1026611

PATIENT
  Age: 70 Year
  Sex: Female
  Weight: 64 kg

DRUGS (27)
  1. ONDANSETRON [Concomitant]
     Active Substance: ONDANSETRON
     Indication: NAUSEA
     Route: 042
     Dates: start: 20181010
  2. LORAZEPAM. [Concomitant]
     Active Substance: LORAZEPAM
     Indication: ANXIETY
  3. FLUTICASONE. [Concomitant]
     Active Substance: FLUTICASONE
     Indication: SEASONAL ALLERGY
     Dosage: 50 MICROGRAM DAILY;
     Route: 045
     Dates: start: 20180821
  4. COLESTYRAMINE [Concomitant]
     Active Substance: CHOLESTYRAMINE
     Indication: IRRITABLE BOWEL SYNDROME
  5. CLOBETASOL [Concomitant]
     Active Substance: CLOBETASOL
     Indication: ACTINIC KERATOSIS
     Dosage: .1 PERCENT DAILY;
     Dates: start: 20140807
  6. HYOSCYAMINE. [Concomitant]
     Active Substance: HYOSCYAMINE
     Indication: IRRITABLE BOWEL SYNDROME
     Route: 060
     Dates: start: 20180615
  7. PROCHLORPERAZINE. [Concomitant]
     Active Substance: PROCHLORPERAZINE
     Indication: NAUSEA
     Route: 048
     Dates: start: 20181010
  8. HALOBETASOL [Concomitant]
     Active Substance: HALOBETASOL PROPIONATE
     Indication: ACTINIC KERATOSIS
     Dosage: .1 PERCENT DAILY;
     Route: 061
     Dates: start: 20181108
  9. SYNRIBO [Suspect]
     Active Substance: OMACETAXINE MEPESUCCINATE
     Indication: MYELODYSPLASTIC SYNDROME
     Dosage: 1 MG/M2 DAILY; DAYS 1-7
     Route: 058
     Dates: start: 20181205, end: 20181211
  10. LEVOTHYROXINE. [Concomitant]
     Active Substance: LEVOTHYROXINE
     Indication: HYPOTHYROIDISM
     Dosage: 100 MICROGRAM DAILY;
     Route: 048
     Dates: start: 20181012
  11. ONDANSETRON [Concomitant]
     Active Substance: ONDANSETRON
     Indication: BIOPSY BONE MARROW
     Dosage: 0 - 4MG
     Route: 042
     Dates: start: 20180918, end: 20180918
  12. PROCHLORPERAZINE. [Concomitant]
     Active Substance: PROCHLORPERAZINE
     Indication: VOMITING
  13. COLECALCIFEROL [Concomitant]
     Active Substance: CHOLECALCIFEROL
     Indication: SUPPLEMENTATION THERAPY
     Dosage: 50000  DAILY;
     Route: 048
  14. RANITIDINE. [Concomitant]
     Active Substance: RANITIDINE
     Indication: GASTROOESOPHAGEAL REFLUX DISEASE
     Dosage: 300 MILLIGRAM DAILY;
     Route: 048
     Dates: start: 20181210
  15. NORMAL SALINE [Concomitant]
     Active Substance: SODIUM CHLORIDE
     Indication: BIOPSY BONE MARROW
     Dosage: BOLUS
     Route: 042
     Dates: start: 20181012
  16. LORAZEPAM. [Concomitant]
     Active Substance: LORAZEPAM
     Indication: NAUSEA
     Dosage: 2 MILLIGRAM DAILY;
     Route: 048
     Dates: start: 20181010
  17. ACYCLOVIR. [Concomitant]
     Active Substance: ACYCLOVIR
     Indication: ANTIVIRAL PROPHYLAXIS
     Dosage: 800 MILLIGRAM DAILY;
     Route: 048
     Dates: start: 20180913
  18. ALBUTEROL. [Concomitant]
     Active Substance: ALBUTEROL
     Indication: ASTHMA
     Dosage: 1-2 PUFFS
     Route: 055
     Dates: start: 20180418
  19. QUINAPRIL. [Concomitant]
     Active Substance: QUINAPRIL
     Indication: HYPERTENSION
     Dosage: 10 MILLIGRAM DAILY;
     Route: 048
     Dates: start: 20180327
  20. MULTIVITAMINS [Concomitant]
     Active Substance: VITAMINS
     Indication: SUPPLEMENTATION THERAPY
     Dosage: 1 DOSAGE FORMS DAILY;
     Route: 048
  21. VIDAZA [Suspect]
     Active Substance: AZACITIDINE
     Indication: MYELODYSPLASTIC SYNDROME
     Dosage: 75 MG/M2 DAILY; DAYS 1-7 OF 28 DAYS
     Route: 042
     Dates: start: 20181205, end: 20181211
  22. NORMAL SALINE [Concomitant]
     Active Substance: SODIUM CHLORIDE
     Indication: FLUID REPLACEMENT
     Dosage: 1000 ML DAILY;
     Route: 042
     Dates: start: 20180918, end: 20180918
  23. LIDOCAINE. [Concomitant]
     Active Substance: LIDOCAINE
     Indication: MUCOSAL INFLAMMATION
     Dosage: 20 ML DAILY; SWISH AND SPIT
     Dates: start: 20181031
  24. COLESTYRAMINE [Concomitant]
     Active Substance: CHOLESTYRAMINE
     Indication: DIARRHOEA
     Dosage: 1 PACKET
     Route: 048
     Dates: start: 20180814
  25. ESOMEPRAZOLE. [Concomitant]
     Active Substance: ESOMEPRAZOLE MAGNESIUM
     Indication: GASTROOESOPHAGEAL REFLUX DISEASE
     Dosage: 40 MILLIGRAM DAILY;
     Route: 048
     Dates: start: 20180916
  26. LOPERAMIDE [Concomitant]
     Active Substance: LOPERAMIDE
     Indication: IRRITABLE BOWEL SYNDROME
     Route: 048
  27. LEVOFLOXACIN. [Concomitant]
     Active Substance: LEVOFLOXACIN
     Indication: ANTIBIOTIC PROPHYLAXIS
     Dosage: 500 MILLIGRAM DAILY;
     Route: 048
     Dates: start: 20181210

REACTIONS (2)
  - Sepsis [Unknown]
  - Febrile neutropenia [Unknown]

NARRATIVE: CASE EVENT DATE: 20190101
